FAERS Safety Report 12395410 (Version 2)
Quarter: 2016Q2

REPORT INFORMATION
  Report Type: Spontaneous
  Country: US (occurrence: US)
  Receive Date: 20160523
  Receipt Date: 20160615
  Transmission Date: 20160815
  Serious: No
  Sender: FDA-Public Use
  Company Number: ALCN2016US003286

PATIENT
  Sex: Female

DRUGS (1)
  1. TOBRADEX [Suspect]
     Active Substance: DEXAMETHASONE\TOBRAMYCIN
     Indication: EYE INFECTION
     Dosage: 1 GTT, QID
     Route: 047
     Dates: start: 20160428, end: 20160508

REACTIONS (1)
  - Drug ineffective [Not Recovered/Not Resolved]
